FAERS Safety Report 9249630 (Version 2)
Quarter: 2013Q3

REPORT INFORMATION
  Report Type: Spontaneous
  Country: US (occurrence: US)
  Receive Date: 20130423
  Receipt Date: 20130708
  Transmission Date: 20140515
  Serious: Yes (Life-Threatening, Hospitalization, Other)
  Sender: FDA-Public Use
  Company Number: US-MERCK-1304USA009341

PATIENT
  Age: 37 Year
  Sex: Female

DRUGS (2)
  1. SAPHRIS [Suspect]
     Indication: PSYCHOTIC DISORDER
     Dosage: 5 MG, QD
     Route: 060
     Dates: start: 201202, end: 201202
  2. ATIVAN [Concomitant]
     Dosage: 0.5
     Route: 048

REACTIONS (1)
  - Hypotension [Recovered/Resolved]
